FAERS Safety Report 5120382-5 (Version None)
Quarter: 2006Q4

REPORT INFORMATION
  Report Type: 
  Country: None (occurrence: None)
  Receive Date: 20061004
  Receipt Date: 20060113
  Transmission Date: 20070319
  Serious: Yes (Other)
  Sender: FDA-Public Use
  Company Number: US-GLAXOSMITHKLINE-A0589240A

PATIENT

DRUGS (3)
  1. LAMICTAL [Suspect]
     Indication: BIPOLAR DISORDER
     Dosage: 100MG PER DAY
     Route: 048
  2. ESKALITH [Concomitant]
     Dosage: 450MG PER DAY
     Route: 048
  3. EFFEXOR XR [Concomitant]
     Dosage: 150MG PER DAY
     Route: 048

REACTIONS (16)
  - AGITATION [None]
  - ANGER [None]
  - ANTISOCIAL PERSONALITY DISORDER [None]
  - CHEST DISCOMFORT [None]
  - COORDINATION ABNORMAL [None]
  - FATIGUE [None]
  - FEELING ABNORMAL [None]
  - HEADACHE [None]
  - HYPOMANIA [None]
  - IMPAIRED WORK ABILITY [None]
  - INTERMITTENT EXPLOSIVE DISORDER [None]
  - IRRITABILITY [None]
  - NEGATIVE THOUGHTS [None]
  - PAIN [None]
  - STRESS [None]
  - SUICIDAL IDEATION [None]
